FAERS Safety Report 24054616 (Version 1)
Quarter: 2024Q3

REPORT INFORMATION
  Report Type: Spontaneous
  Country: CN (occurrence: CN)
  Receive Date: 20240705
  Receipt Date: 20240705
  Transmission Date: 20241017
  Serious: Yes (Other)
  Sender: BAXTER
  Company Number: None

PATIENT
  Age: 75 Year
  Sex: Male
  Weight: 56.7 kg

DRUGS (4)
  1. CYCLOPHOSPHAMIDE [Suspect]
     Active Substance: CYCLOPHOSPHAMIDE
     Indication: Plasma cell myeloma
     Dosage: 0.3 G, ONE TIME IN FOUR DAYS, (D1,4,8,11), DILUTED WITH 40 ML OF 0.9% SODIUM CHLORIDE (ROUTE:IV PUSH
     Route: 050
     Dates: start: 20240604, end: 20240614
  2. BORTEZOMIB [Suspect]
     Active Substance: BORTEZOMIB
     Indication: Plasma cell myeloma
     Dosage: 2 MG, ONE TIME IN FOUR DAYS, (D1,4,8,11), DILUTED WITH 0.8 ML OF 0.9% SODIUM CHLORIDE (BATCH NO: PUR
     Route: 058
     Dates: start: 20240604, end: 20240614
  3. SODIUM CHLORIDE [Suspect]
     Active Substance: SODIUM CHLORIDE
     Indication: Medication dilution
     Dosage: 40 ML, ONE TIME IN FOUR DAYS, (D1,4,8,11) USED TO DILUTE 0.3 G OF CYCLOPHOSPHAMIDE (ROUTE: IV PUSH V
     Route: 050
     Dates: start: 20240604, end: 20240614
  4. SODIUM CHLORIDE [Suspect]
     Active Substance: SODIUM CHLORIDE
     Dosage: 0.8 ML, ONE TIME IN FOUR DAYS, (D1,4,8,11) USED TO DILUTE 2 MG OF BORTEZOMIB
     Route: 058
     Dates: start: 20240604, end: 20240614

REACTIONS (3)
  - Hiccups [Recovering/Resolving]
  - Transaminases increased [Recovering/Resolving]
  - Diarrhoea [Recovering/Resolving]

NARRATIVE: CASE EVENT DATE: 20240605
